FAERS Safety Report 4393952-X (Version None)
Quarter: 2004Q3

REPORT INFORMATION
  Report Type: 
  Country: None (occurrence: None)
  Receive Date: 20040702
  Receipt Date: 20040621
  Transmission Date: 20050211
  Serious: Yes (Life-Threatening)
  Sender: FDA-Public Use
  Company Number: 2004220043IT

PATIENT
  Age: 38 Year
  Sex: Female

DRUGS (5)
  1. ZINECARD [Suspect]
     Indication: CHEMOTHERAPY CARDIOTOXICITY ATTENUATION
     Dosage: 800 MG/M2, CYCLIC,
  2. DEXAMETHASONE [Concomitant]
  3. FLUOROURACIL [Concomitant]
  4. EPIRUBICIN [Concomitant]
  5. CYCLOPHOSPHAMIDE [Concomitant]

REACTIONS (3)
  - ANAPHYLACTIC REACTION [None]
  - DRUG HYPERSENSITIVITY [None]
  - DRUG TOXICITY [None]
